FAERS Safety Report 15001743 (Version 1)
Quarter: 2018Q2

REPORT INFORMATION
  Report Type: Spontaneous
  Country: US (occurrence: US)
  Receive Date: 20180524
  Receipt Date: 20180524
  Transmission Date: 20180711
  Serious: No
  Sender: FDA-Public Use
  Company Number: None

PATIENT
  Age: 60 Year
  Sex: Female
  Weight: 62.1 kg

DRUGS (6)
  1. LISINOPRIL. [Concomitant]
     Active Substance: LISINOPRIL
  2. IBUPROFEN. [Concomitant]
     Active Substance: IBUPROFEN
  3. CHLORAPREP [Suspect]
     Active Substance: CHLORHEXIDINE GLUCONATE\ISOPROPYL ALCOHOL
     Indication: ANTIBIOTIC PROPHYLAXIS
     Route: 061
     Dates: start: 20180515, end: 20180515
  4. CLIMARA [Concomitant]
     Active Substance: ESTRADIOL
  5. CLARINEX [Concomitant]
     Active Substance: DESLORATADINE
  6. METAMUCIL [Concomitant]
     Active Substance: PLANTAGO SEED

REACTIONS (3)
  - Rash pruritic [None]
  - Application site rash [None]
  - Drug ineffective [None]

NARRATIVE: CASE EVENT DATE: 20180515
